FAERS Safety Report 5984027-4 (Version None)
Quarter: 2008Q4

REPORT INFORMATION
  Report Type: 
  Country: None (occurrence: None)
  Receive Date: 20081205
  Receipt Date: 20081205
  Transmission Date: 20090506
  Serious: Yes (Life-Threatening)
  Sender: FDA-Public Use
  Company Number: None

PATIENT
  Sex: Male
  Weight: 90.7194 kg

DRUGS (2)
  1. ISOSORBIDE MONONITRATE [Suspect]
     Indication: ANGINA PECTORIS
     Dosage: 60 MG 13 DAYS ER TAB
     Dates: start: 20081104
  2. ISOSORBIDE MONONITRATE [Suspect]
     Dosage: KREMERS
     Dates: start: 20081117

REACTIONS (11)
  - ANXIETY [None]
  - ARTERIAL DISORDER [None]
  - ARTHRITIS [None]
  - BLOOD GLUCOSE FLUCTUATION [None]
  - CHEST PAIN [None]
  - DRUG DEPENDENCE [None]
  - GOUT [None]
  - HEADACHE [None]
  - NAUSEA [None]
  - NERVOUSNESS [None]
  - RENAL DISORDER [None]
